FAERS Safety Report 21861280 (Version 2)
Quarter: 2023Q1

REPORT INFORMATION
  Report Type: Spontaneous
  Country: DE (occurrence: DE)
  Receive Date: 20230113
  Receipt Date: 20230123
  Transmission Date: 20230417
  Serious: No
  Sender: FDA-Public Use
  Company Number: DE-BAYER-2023A003302

PATIENT
  Age: 64 Year
  Sex: Female

DRUGS (2)
  1. GADOBUTROL [Suspect]
     Active Substance: GADOBUTROL
     Dosage: 1 MMOL/L, ONCE
  2. GADOPENTETATE DIMEGLUMINE [Suspect]
     Active Substance: GADOPENTETATE DIMEGLUMINE
     Dosage: 0.5 MMOL/L, ONCE

REACTIONS (1)
  - Contrast media deposition [None]
